FAERS Safety Report 16299354 (Version 1)
Quarter: 2019Q2

REPORT INFORMATION
  Report Type: Report from Study
  Country: IT (occurrence: IT)
  Receive Date: 20190510
  Receipt Date: 20190510
  Transmission Date: 20190711
  Serious: Yes (Other)
  Sender: FDA-Public Use
  Company Number: IT-PFIZER INC-2019195711

PATIENT
  Age: 80 Year
  Sex: Female
  Weight: 85 kg

DRUGS (1)
  1. IBRANCE [Suspect]
     Active Substance: PALBOCICLIB
     Indication: BREAST CANCER STAGE IV
     Dosage: 1 DF, 1X/DAY
     Route: 048
     Dates: start: 20190110, end: 20190131

REACTIONS (5)
  - Thrombocytopenia [Recovering/Resolving]
  - Ecchymosis [Recovering/Resolving]
  - Neutropenia [Recovering/Resolving]
  - Blood creatinine increased [Recovering/Resolving]
  - Epistaxis [Recovering/Resolving]

NARRATIVE: CASE EVENT DATE: 20190124
